FAERS Safety Report 24205927 (Version 1)
Quarter: 2024Q3

REPORT INFORMATION
  Report Type: Spontaneous
  Country: US (occurrence: None)
  Receive Date: 20240812
  Receipt Date: 20240812
  Transmission Date: 20241017
  Serious: Yes (Other)
  Sender: Public
  Company Number: None

PATIENT
  Age: 5 Year
  Sex: Male
  Weight: 23.9 kg

DRUGS (7)
  1. DUPIXENT [Suspect]
     Active Substance: DUPILUMAB
     Indication: Dermatitis atopic
     Dosage: EVERY 28 DAYS SUBCUTANEOUS ?
     Route: 058
     Dates: start: 20230622
  2. Flonase 50mcg nasal spray [Concomitant]
  3. Kenalog 0.1% ointment [Concomitant]
  4. MUPIROCIN [Concomitant]
     Active Substance: MUPIROCIN
  5. cetirizine 1mg/mL solution [Concomitant]
  6. albuterol 90mcg inhaler [Concomitant]
  7. Symbicort 160-4.5mcg inhalaer [Concomitant]

REACTIONS (1)
  - Conjunctivitis [None]

NARRATIVE: CASE EVENT DATE: 20240812
